FAERS Safety Report 5203953-7 (Version None)
Quarter: 2007Q1

REPORT INFORMATION
  Report Type: 
  Country: None (occurrence: None)
  Receive Date: 20070105
  Receipt Date: 20070105
  Transmission Date: 20070707
  Serious: Yes (Hospitalization)
  Sender: FDA-Public Use
  Company Number: None

PATIENT
  Age: 63 Year
  Sex: Male
  Weight: 73.9363 kg

DRUGS (1)
  1. GABAPENTIN [Suspect]
     Indication: HEADACHE
     Dosage: 300MG 2 CAPS TID
     Dates: start: 20050409

REACTIONS (6)
  - DIZZINESS [None]
  - DRUG TOXICITY [None]
  - HEADACHE [None]
  - MUSCULAR WEAKNESS [None]
  - OEDEMA PERIPHERAL [None]
  - SOMNOLENCE [None]
